FAERS Safety Report 5960240-7 (Version None)
Quarter: 2008Q4

REPORT INFORMATION
  Report Type: 
  Country: None (occurrence: None)
  Receive Date: 20081110
  Receipt Date: 20080708
  Transmission Date: 20090506
  Serious: No
  Sender: FDA-Public Use
  Company Number: WAES 0807USA01370

PATIENT
  Sex: Female

DRUGS (2)
  1. ZOLINZA [Suspect]
     Indication: MULTIPLE MYELOMA
     Dosage: PO
     Route: 048
  2. VELCADE [Concomitant]

REACTIONS (4)
  - BLOOD GLUCOSE INCREASED [None]
  - BLOOD SODIUM DECREASED [None]
  - INTENTIONAL DRUG MISUSE [None]
  - PLATELET COUNT DECREASED [None]
